FAERS Safety Report 7730527-6 (Version None)
Quarter: 2011Q3

REPORT INFORMATION
  Report Type: 
  Country: None (occurrence: None)
  Receive Date: 20110906
  Receipt Date: 20110831
  Transmission Date: 20111222
  Serious: Yes (Hospitalization, Other)
  Sender: FDA-Public Use
  Company Number: PHHY2011ZA20334

PATIENT
  Sex: Female

DRUGS (5)
  1. CALCIFEROL [Concomitant]
     Dosage: UNK UKN, UNK
     Route: 048
  2. ZOLEDRONOC ACID [Suspect]
     Dosage: 5, MG, YEARLY
     Dates: start: 20090301
  3. SIMVASTATIN [Concomitant]
     Indication: BLOOD CHOLESTEROL INCREASED
     Dosage: UNK UKN, UNK
     Route: 048
  4. ZOLEDRONOC ACID [Suspect]
     Dosage: 5 MG, YEARLY
     Dates: start: 20100501
  5. CALCIUM CARBONATE [Concomitant]
     Dosage: UNK UKN, UNK

REACTIONS (4)
  - NEPHROLITHIASIS [None]
  - URINARY TRACT INFECTION [None]
  - BLOOD POTASSIUM DECREASED [None]
  - CYSTITIS [None]
